FAERS Safety Report 9403368 (Version 1)
Quarter: 2013Q3

REPORT INFORMATION
  Report Type: Report from Study
  Country: DE (occurrence: DE)
  Receive Date: 20130716
  Receipt Date: 20130716
  Transmission Date: 20140515
  Serious: Yes (Hospitalization)
  Sender: FDA-Public Use
  Company Number: DE-BAXTER-2013BAX027026

PATIENT
  Sex: Male

DRUGS (11)
  1. ENDOXAN 1G [Suspect]
     Indication: B-CELL LYMPHOMA
     Route: 042
     Dates: start: 20130611, end: 20130611
  2. RITUXIMAB [Suspect]
     Indication: B-CELL LYMPHOMA
     Route: 042
     Dates: start: 20130610, end: 20130610
  3. FILGRASTIM [Suspect]
     Indication: B-CELL LYMPHOMA
     Route: 058
     Dates: start: 20130615, end: 20130620
  4. PREDNISOLONE [Suspect]
     Indication: B-CELL LYMPHOMA
     Route: 048
     Dates: start: 20130610, end: 20130615
  5. DOXORUBICINE [Suspect]
     Indication: B-CELL LYMPHOMA
     Route: 042
     Dates: start: 20130611, end: 20130611
  6. VINCRISTINE [Suspect]
     Indication: B-CELL LYMPHOMA
     Route: 042
     Dates: start: 20130611, end: 20130611
  7. ALLOPURINOL [Concomitant]
     Indication: BLOOD URIC ACID
     Route: 048
  8. AMPHOTERICIN B [Concomitant]
     Indication: MUCOSAL INFLAMMATION
     Route: 048
  9. CIPROFLOXACIN [Concomitant]
     Indication: PROPHYLAXIS
     Route: 048
     Dates: start: 20130615
  10. PANTOPRAZOL [Concomitant]
     Indication: PRODUCT USED FOR UNKNOWN INDICATION
     Route: 065
  11. ACYCLOVIR [Concomitant]
     Indication: PROPHYLAXIS
     Route: 048

REACTIONS (1)
  - Presyncope [Recovered/Resolved]
